FAERS Safety Report 12282136 (Version 1)
Quarter: 2016Q2

REPORT INFORMATION
  Report Type: Spontaneous
  Country: US (occurrence: None)
  Receive Date: 20160418
  Receipt Date: 20160418
  Transmission Date: 20160815
  Serious: Yes (Other)
  Sender: FDA-Public Use
  Company Number: None

PATIENT
  Age: 49 Year
  Sex: Male
  Weight: 124 kg

DRUGS (2)
  1. IPILIMUMAB BRISTOL-MEYERS SQUIBB [Suspect]
     Active Substance: IPILIMUMAB
     Indication: METASTATIC MALIGNANT MELANOMA
     Route: 042
     Dates: start: 20150911, end: 20151029
  2. NIVOLUMAB [Concomitant]
     Active Substance: NIVOLUMAB

REACTIONS (7)
  - Headache [None]
  - Hypopituitarism [None]
  - Hypophysitis [None]
  - Nausea [None]
  - Blood thyroid stimulating hormone decreased [None]
  - Vomiting [None]
  - Blood testosterone decreased [None]

NARRATIVE: CASE EVENT DATE: 20151113
